FAERS Safety Report 7022669-8 (Version None)
Quarter: 2010Q3

REPORT INFORMATION
  Report Type: 
  Country: None (occurrence: None)
  Receive Date: 20100930
  Receipt Date: 20100929
  Transmission Date: 20110219
  Serious: Yes (Death)
  Sender: FDA-Public Use
  Company Number: A0590611A

PATIENT
  Age: 60 Year
  Sex: Male
  Weight: 90.9 kg

DRUGS (8)
  1. PAXIL [Suspect]
     Indication: ANXIETY
     Dosage: 20MG PER DAY
     Route: 048
     Dates: start: 19970410
  2. PAROXETINE HCL [Suspect]
     Indication: DEPRESSION
     Dosage: 20MG PER DAY
     Route: 048
     Dates: start: 20031222, end: 20040127
  3. KLONOPIN [Concomitant]
     Dates: start: 20031222
  4. DARVOCET [Concomitant]
  5. DONNATAL [Concomitant]
  6. COMPAZINE [Concomitant]
  7. MEGACE [Concomitant]
  8. VALIUM [Concomitant]

REACTIONS (22)
  - ABNORMAL BEHAVIOUR [None]
  - AFFECT LABILITY [None]
  - AKATHISIA [None]
  - COMPLETED SUICIDE [None]
  - DECREASED APPETITE [None]
  - DEPRESSION [None]
  - FEAR OF DEATH [None]
  - FLAT AFFECT [None]
  - FORMICATION [None]
  - GALLBLADDER DISORDER [None]
  - HYPERHIDROSIS [None]
  - MELANOCYTIC NAEVUS [None]
  - MOOD ALTERED [None]
  - NERVOUSNESS [None]
  - NIGHT SWEATS [None]
  - POOR PERSONAL HYGIENE [None]
  - PRURITUS [None]
  - PYREXIA [None]
  - SLEEP DISORDER [None]
  - SOCIAL AVOIDANT BEHAVIOUR [None]
  - SUICIDAL IDEATION [None]
  - WEIGHT DECREASED [None]
